FAERS Safety Report 19505318 (Version 1)
Quarter: 2021Q3

REPORT INFORMATION
  Report Type: Report from Study
  Country: US (occurrence: US)
  Receive Date: 20210707
  Receipt Date: 20210707
  Transmission Date: 20211014
  Serious: Yes (Hospitalization)
  Sender: FDA-Public Use
  Company Number: US-SEATTLE GENETICS-2021SGN03582

PATIENT
  Age: 46 Year
  Sex: Female
  Weight: 68.7 kg

DRUGS (3)
  1. BLINDED PLACEBO FOR TUCATINIB [Suspect]
     Active Substance: TUCATINIB
     Indication: INVASIVE BREAST CARCINOMA
     Dosage: 1200 MG, BID
     Route: 048
     Dates: start: 20210526, end: 20210619
  2. BLINDED TUCATINIB [Suspect]
     Active Substance: TUCATINIB
     Indication: INVASIVE BREAST CARCINOMA
     Dosage: 1200 MG, BID
     Route: 048
     Dates: start: 20210526, end: 20210619
  3. ADO?TRASTUZUMAB EMTANSINE. [Suspect]
     Active Substance: ADO-TRASTUZUMAB EMTANSINE
     Indication: INVASIVE BREAST CARCINOMA
     Dosage: 248 MG, Q3WEEKS
     Route: 042
     Dates: start: 20210526, end: 20210616

REACTIONS (1)
  - Non-cardiac chest pain [Recovered/Resolved]

NARRATIVE: CASE EVENT DATE: 20210619
